FAERS Safety Report 8803608 (Version 2)
Quarter: 2012Q4

REPORT INFORMATION
  Report Type: 
  Country: CO (occurrence: CO)
  Receive Date: 20120924
  Receipt Date: 20120928
  Transmission Date: 20130627
  Serious: Yes (Hospitalization)
  Sender: FDA-Public Use
  Company Number: PHHY2012CO081684

PATIENT
  Age: 91 Year
  Sex: Female

DRUGS (2)
  1. TOBI PODHALER [Suspect]
     Indication: BRONCHIECTASIS
     Dosage: Morning and afternoon (dose unspecified
     Dates: start: 20120827, end: 20120914
  2. INSULIN [Concomitant]

REACTIONS (4)
  - Bronchiectasis [Recovering/Resolving]
  - Blood glucose increased [Unknown]
  - Dyspnoea exertional [Unknown]
  - Productive cough [Unknown]
